FAERS Safety Report 5340888-3 (Version None)
Quarter: 2007Q2

REPORT INFORMATION
  Report Type: 
  Country: None (occurrence: None)
  Receive Date: 20070405
  Receipt Date: 20061109
  Transmission Date: 20071010
  Serious: No
  Sender: FDA-Public Use
  Company Number: US200602004901

PATIENT
  Age: 32 Year
  Sex: Female

DRUGS (6)
  1. CYMBALTA [Suspect]
     Indication: MAJOR DEPRESSION
     Dosage: 60 MG, DAILY (1/D)
     Dates: start: 20050901, end: 20051227
  2. CYMBALTA [Suspect]
     Indication: MAJOR DEPRESSION
     Dosage: 60 MG, DAILY (1/D)
     Dates: start: 20051228, end: 20060118
  3. CYMBALTA [Suspect]
     Indication: MAJOR DEPRESSION
     Dosage: 60 MG, DAILY (1/D)
     Dates: start: 20060119, end: 20060130
  4. PROZAC [Suspect]
     Dosage: 20 MG
     Dates: start: 20060202
  5. AMBIEN [Concomitant]
  6. XANAX [Concomitant]

REACTIONS (12)
  - AGITATION [None]
  - CONFUSIONAL STATE [None]
  - CRYING [None]
  - DEPRESSION [None]
  - DISTURBANCE IN ATTENTION [None]
  - DRUG INEFFECTIVE [None]
  - DRUG WITHDRAWAL SYNDROME [None]
  - FEELING ABNORMAL [None]
  - LOGORRHOEA [None]
  - PALPITATIONS [None]
  - SENSORY LOSS [None]
  - SUICIDAL IDEATION [None]
